FAERS Safety Report 6019704-2 (Version None)
Quarter: 2008Q4

REPORT INFORMATION
  Report Type: 
  Country: None (occurrence: None)
  Receive Date: 20081224
  Receipt Date: 20081217
  Transmission Date: 20090506
  Serious: Yes (Other)
  Sender: FDA-Public Use
  Company Number: BE-WATSON-2008-07412

PATIENT
  Age: 33 Year
  Sex: Female

DRUGS (6)
  1. PROGESTERONE IN OIL INJ [Suspect]
     Indication: PREMATURE LABOUR
     Dosage: 400 MG, SINGLE
     Route: 048
  2. ATOSIBAN [Suspect]
     Indication: PREMATURE LABOUR
     Dosage: 6.75 MG, INDUCTION DOSE OVER 1 MIN
     Route: 042
  3. ATOSIBAN [Suspect]
     Dosage: 300 MCG/MIN OVER 3 HRS
     Route: 042
  4. ATOSIBAN [Suspect]
     Dosage: 100 MCG/MIN
     Route: 042
  5. ATOSIBAN [Suspect]
     Dosage: 50 MCG/MIN
     Route: 042
  6. INDOMETHACIN [Suspect]
     Indication: PREMATURE LABOUR
     Dosage: 100 MG, Q24H X2
     Route: 054

REACTIONS (1)
  - NON-CARDIOGENIC PULMONARY OEDEMA [None]
